FAERS Safety Report 11924826 (Version 4)
Quarter: 2016Q1

REPORT INFORMATION
  Report Type: Spontaneous
  Country: NZ (occurrence: NZ)
  Receive Date: 20160118
  Receipt Date: 20160204
  Transmission Date: 20160526
  Serious: Yes (Hospitalization)
  Sender: FDA-Public Use
  Company Number: NZ-SA-2016SA007375

PATIENT
  Age: 75 Year
  Sex: Female
  Weight: 45.6 kg

DRUGS (14)
  1. TICAGRELOR [Concomitant]
     Active Substance: TICAGRELOR
     Dates: start: 20140402, end: 20150704
  2. SPIRIVA [Concomitant]
     Active Substance: TIOTROPIUM BROMIDE MONOHYDRATE
     Route: 055
  3. VENTOLIN [Concomitant]
     Active Substance: ALBUTEROL SULFATE
  4. FUROSEMIDE. [Suspect]
     Active Substance: FUROSEMIDE
     Route: 065
     Dates: start: 201412, end: 20150407
  5. ASPIRIN. [Concomitant]
     Active Substance: ASPIRIN
     Dates: start: 1994
  6. ATORVASTATIN [Concomitant]
     Active Substance: ATORVASTATIN
     Dates: start: 20150825
  7. TIOTROPIUM [Concomitant]
     Active Substance: TIOTROPIUM
     Dates: start: 2004
  8. NORTRIPTYLINE [Concomitant]
     Active Substance: NORTRIPTYLINE
     Dosage: NOCTE
     Dates: start: 2004
  9. BISOPROLOL [Concomitant]
     Active Substance: BISOPROLOL
     Dates: start: 20140402
  10. OMEPRAZOLE. [Concomitant]
     Active Substance: OMEPRAZOLE
     Dates: start: 2004
  11. SERETIDE [Concomitant]
     Active Substance: FLUTICASONE FUROATE\SALMETEROL XINAFOATE
     Dosage: 125/25 MEG 2 PUFFS
     Dates: start: 2004
  12. ATORVASTATIN [Concomitant]
     Active Substance: ATORVASTATIN
     Dates: start: 20140402, end: 20150820
  13. INFLUENZA VACCINE [Concomitant]
     Active Substance: INFLUENZA VIRUS VACCINE
     Dates: start: 201504, end: 201504
  14. CANDESARTAN [Concomitant]
     Active Substance: CANDESARTAN
     Dates: start: 20140401

REACTIONS (6)
  - Hypertension [Unknown]
  - Hyponatraemia [Unknown]
  - Pneumonia [Recovered/Resolved]
  - Asthenia [Unknown]
  - Cough [Unknown]
  - Hypokalaemia [Recovered/Resolved]

NARRATIVE: CASE EVENT DATE: 2015
